FAERS Safety Report 9556335 (Version 1)
Quarter: 2013Q3

REPORT INFORMATION
  Report Type: Spontaneous
  Country: US (occurrence: None)
  Receive Date: 20130815
  Receipt Date: 20130815
  Transmission Date: 20140515
  Serious: Yes (Hospitalization, Other)
  Sender: FDA-Public Use
  Company Number: ADR-2013-00400

PATIENT
  Age: 56 Year
  Sex: Male

DRUGS (3)
  1. BACLOFEN UNKNOWN (BACLOFEN INTRATHECAL) [Suspect]
     Indication: MUSCLE SPASTICITY
  2. BACLOFEN UNKNOWN (BACLOFEN INTRATHECAL) [Suspect]
     Indication: MULTIPLE SCLEROSIS
  3. BACLOFEN [Concomitant]

REACTIONS (1)
  - Drug withdrawal syndrome [None]
